FAERS Safety Report 13178060 (Version 1)
Quarter: 2017Q1

REPORT INFORMATION
  Report Type: Spontaneous
  Country: CZ (occurrence: CZ)
  Receive Date: 20170202
  Receipt Date: 20170202
  Transmission Date: 20170428
  Serious: Yes (Other)
  Sender: FDA-Public Use
  Company Number: CZ-ROCHE-1886862

PATIENT

DRUGS (1)
  1. ROACTEMRA [Suspect]
     Active Substance: TOCILIZUMAB
     Indication: RHEUMATOID ARTHRITIS
     Route: 058
     Dates: start: 20150316, end: 20160608

REACTIONS (3)
  - Thyroid neoplasm [Unknown]
  - Infection [Unknown]
  - Lung neoplasm [Unknown]
